FAERS Safety Report 6840617-8 (Version None)
Quarter: 2010Q3

REPORT INFORMATION
  Report Type: 
  Country: None (occurrence: None)
  Receive Date: 20100714
  Receipt Date: 20070517
  Transmission Date: 20110219
  Serious: No
  Sender: FDA-Public Use
  Company Number: US-PFIZER INC-2007039871

PATIENT
  Sex: Female

DRUGS (2)
  1. CHANTIX [Interacting]
     Indication: SMOKING CESSATION THERAPY
  2. PAXIL [Suspect]

REACTIONS (7)
  - ANGER [None]
  - ANXIETY [None]
  - CONFUSIONAL STATE [None]
  - DISTURBANCE IN ATTENTION [None]
  - DRUG INTERACTION [None]
  - IRRITABILITY [None]
  - STRESS [None]
